FAERS Safety Report 7958525-8 (Version None)
Quarter: 2011Q4

REPORT INFORMATION
  Report Type: 
  Country: None (occurrence: None)
  Receive Date: 20111206
  Receipt Date: 20111122
  Transmission Date: 20120403
  Serious: Yes (Hospitalization)
  Sender: FDA-Public Use
  Company Number: IE-BIOGENIDEC-2011BI045647

PATIENT
  Age: 38 Year
  Sex: Female

DRUGS (3)
  1. LIORESAL [Concomitant]
     Indication: MUSCULOSKELETAL STIFFNESS
     Route: 048
     Dates: start: 20110111
  2. TYSABRI [Suspect]
     Indication: MULTIPLE SCLEROSIS
     Route: 042
     Dates: start: 20081003
  3. AMITRIPTYLINE HCL [Concomitant]
     Indication: NEURALGIA
     Route: 048
     Dates: start: 20111012

REACTIONS (2)
  - SCIATICA [None]
  - BACK PAIN [None]
